FAERS Safety Report 16406365 (Version 2)
Quarter: 2019Q2

REPORT INFORMATION
  Report Type: Report from Study
  Country: US (occurrence: US)
  Receive Date: 20190607
  Receipt Date: 20190620
  Transmission Date: 20190711
  Serious: Yes (Death, Hospitalization)
  Sender: FDA-Public Use
  Company Number: US-EXELIXIS-XL18419021552

PATIENT
  Age: 63 Year
  Sex: Male
  Weight: 54.25 kg

DRUGS (2)
  1. XL184 [Suspect]
     Active Substance: CABOZANTINIB
     Indication: OESOPHAGEAL CARCINOMA
     Dosage: 20 MG, QD
     Route: 048
     Dates: start: 20190311, end: 20190422
  2. DURVALUMAB. [Concomitant]
     Active Substance: DURVALUMAB
     Indication: OESOPHAGEAL CARCINOMA
     Dosage: 1500 MG, Q28 DAYS
     Route: 042
     Dates: start: 20190311, end: 20190411

REACTIONS (2)
  - Sepsis [Unknown]
  - Death [Fatal]

NARRATIVE: CASE EVENT DATE: 20190530
